FAERS Safety Report 5384301-9 (Version None)
Quarter: 2007Q3

REPORT INFORMATION
  Report Type: 
  Country: None (occurrence: None)
  Receive Date: 20070711
  Receipt Date: 20060807
  Transmission Date: 20080115
  Serious: No
  Sender: FDA-Public Use
  Company Number: US-AMGEN-KDL189272

PATIENT
  Sex: Male

DRUGS (1)
  1. KINERET [Suspect]
     Indication: DERMATOMYOSITIS
     Route: 058
     Dates: start: 20060201

REACTIONS (3)
  - CHILLS [None]
  - PYREXIA [None]
  - VISUAL ACUITY REDUCED [None]
